FAERS Safety Report 7504213-1 (Version None)
Quarter: 2011Q2

REPORT INFORMATION
  Report Type: 
  Country: None (occurrence: None)
  Receive Date: 20110525
  Receipt Date: 20110520
  Transmission Date: 20111010
  Serious: Yes (Other)
  Sender: FDA-Public Use
  Company Number: US-PFIZER INC-2011099542

PATIENT
  Sex: Female
  Weight: 90.703 kg

DRUGS (4)
  1. ACETAMINOPHEN [Concomitant]
     Indication: HEADACHE
     Dosage: 500 MG, UNK
     Route: 048
  2. CHANTIX [Suspect]
     Dosage: 1 MG, UNK
     Dates: start: 20110401, end: 20110503
  3. NEXIUM [Concomitant]
     Indication: GASTRIC ULCER
     Dosage: 40 MG, 1X/DAY
     Route: 048
  4. CHANTIX [Suspect]
     Indication: SMOKING CESSATION THERAPY
     Dosage: 0.5 MG, 1X/DAY
     Route: 048
     Dates: start: 20110401, end: 20110401

REACTIONS (2)
  - APATHY [None]
  - SUICIDAL IDEATION [None]
